FAERS Safety Report 8305633-8 (Version None)
Quarter: 2012Q2

REPORT INFORMATION
  Report Type: 
  Country: None (occurrence: None)
  Receive Date: 20120418
  Receipt Date: 20120410
  Transmission Date: 20120825
  Serious: Yes (Other)
  Sender: FDA-Public Use
  Company Number: 2012-000404

PATIENT
  Age: 76 Year
  Sex: Female

DRUGS (2)
  1. RISEDRONATE SODIUM [Suspect]
     Dosage: ORAL
     Route: 048
  2. ALENDRONATE SODIUM [Suspect]
     Dosage: ORAL
     Route: 048

REACTIONS (2)
  - FALL [None]
  - FEMUR FRACTURE [None]
